FAERS Safety Report 5943623-0 (Version None)
Quarter: 2008Q4

REPORT INFORMATION
  Report Type: 
  Country: None (occurrence: None)
  Receive Date: 20081106
  Receipt Date: 20081027
  Transmission Date: 20090506
  Serious: Yes (Other)
  Sender: FDA-Public Use
  Company Number: US-PFIZER INC-2007051662

PATIENT
  Age: 44 Year
  Sex: Female

DRUGS (7)
  1. NARDIL [Suspect]
  2. GEODON [Suspect]
  3. LAMICTAL [Suspect]
  4. ABILIFY [Suspect]
  5. QUETIAPINE FUMARATE [Suspect]
  6. SYNTHROID [Concomitant]
  7. MULTI-VITAMINS [Concomitant]

REACTIONS (2)
  - MEMORY IMPAIRMENT [None]
  - MENTAL DISORDER [None]
